FAERS Safety Report 9869966 (Version 2)
Quarter: 2014Q1

REPORT INFORMATION
  Report Type: Report from Study
  Country: BE (occurrence: BE)
  Receive Date: 20140205
  Receipt Date: 20140205
  Transmission Date: 20141002
  Serious: Yes (Life-Threatening)
  Sender: FDA-Public Use
  Company Number: BE-AMGEN-BELCT2013089778

PATIENT
  Age: 58 Year
  Sex: Male

DRUGS (11)
  1. ETANERCEPT [Suspect]
     Indication: RHEUMATOID ARTHRITIS
     Dosage: 50 MG, QWK
     Route: 058
     Dates: start: 200806, end: 201302
  2. ALENDRONATE [Concomitant]
     Indication: OSTEOPOROSIS
     Dosage: UNK
     Route: 048
     Dates: start: 2007
  3. ALPRATOP [Concomitant]
     Indication: NERVOUSNESS
     Dosage: UNK
     Route: 048
  4. MEDROL                             /00049601/ [Concomitant]
     Indication: ARTHRITIS
     Dosage: UNK
     Route: 048
  5. MS DIRECT [Concomitant]
     Indication: PAIN
     Dosage: UNK
     Route: 048
  6. ZOLPIDEM [Concomitant]
     Indication: SLEEP DISORDER
     Dosage: UNK
     Route: 048
  7. SULPIRIDE [Concomitant]
     Dosage: UNK
     Route: 048
  8. OMEPRAZOLE [Concomitant]
     Indication: PROPHYLAXIS
     Dosage: UNK
     Route: 048
  9. CRESTOR [Concomitant]
     Indication: HYPERCHOLESTEROLAEMIA
     Dosage: UNK
     Route: 048
  10. CELEBREX [Concomitant]
     Dosage: UNK
     Route: 048
  11. MEDROL [Concomitant]
     Indication: ARTHRITIS
     Route: 048

REACTIONS (1)
  - Lung adenocarcinoma [Recovering/Resolving]
